FAERS Safety Report 5410903-7 (Version None)
Quarter: 2007Q3

REPORT INFORMATION
  Report Type: 
  Country: None (occurrence: None)
  Receive Date: 20070810
  Receipt Date: 20070802
  Transmission Date: 20080115
  Serious: Yes (Other)
  Sender: FDA-Public Use
  Company Number: JP-NOVOPROD-266193

PATIENT

DRUGS (1)
  1. NORDITROPIN NORDIFLEX [Suspect]
     Indication: GROWTH HORMONE DEFICIENCY
     Dosage: 2.4 MG, QW
     Route: 058
     Dates: start: 20060112, end: 20070726

REACTIONS (1)
  - MELANOCYTIC NAEVUS [None]
